FAERS Safety Report 18748819 (Version 2)
Quarter: 2021Q1

REPORT INFORMATION
  Report Type: Report from Study
  Country: US (occurrence: US)
  Receive Date: 20210115
  Receipt Date: 20210120
  Transmission Date: 20210419
  Serious: Yes (Death, Hospitalization, Other)
  Sender: FDA-Public Use
  Company Number: US-GILEAD-2021-0513205

PATIENT
  Sex: Male
  Weight: 111 kg

DRUGS (1)
  1. KTE?X19 [Suspect]
     Active Substance: AXICABTAGENE CILOLEUCEL
     Indication: MANTLE CELL LYMPHOMA
     Dosage: 68 ML, ONCE
     Route: 042
     Dates: start: 20201122, end: 20201122

REACTIONS (2)
  - Sepsis [Fatal]
  - Encephalopathy [Unknown]

NARRATIVE: CASE EVENT DATE: 20201126
